FAERS Safety Report 17555355 (Version 1)
Quarter: 2020Q1

REPORT INFORMATION
  Report Type: Spontaneous
  Country: US (occurrence: US)
  Receive Date: 20200310
  Receipt Date: 20200310
  Transmission Date: 20200409
  Serious: No
  Sender: FDA-Public Use
  Company Number: None

PATIENT
  Age: 2 Month

DRUGS (2)
  1. PHENYLEPHRINE [Suspect]
     Active Substance: PHENYLEPHRINE HYDROCHLORIDE
     Dosage: ?          OTHER STRENGTH:4000MCG/10ML;?
  2. EPINEPHRINE. [Suspect]
     Active Substance: EPINEPHRINE
     Dosage: ?          OTHER STRENGTH:100MCG/10ML;?

REACTIONS (4)
  - Wrong product administered [None]
  - Product name confusion [None]
  - Product label confusion [None]
  - Product dispensing error [None]
